FAERS Safety Report 5404619-0 (Version None)
Quarter: 2007Q3

REPORT INFORMATION
  Report Type: 
  Country: None (occurrence: None)
  Receive Date: 20070713
  Receipt Date: 20070206
  Transmission Date: 20080115
  Serious: Yes (Hospitalization)
  Sender: FDA-Public Use
  Company Number: US-JNJFOC-20060401484

PATIENT
  Age: 38 Year
  Sex: Female
  Weight: 86.1834 kg

DRUGS (12)
  1. ORTHO EVRA [Suspect]
     Indication: MENSTRUATION IRREGULAR
     Dosage: TRANSDERMAL
     Route: 062
     Dates: start: 20030105, end: 20030220
  2. OSCAL (CALCIUM CARBONATE) [Suspect]
  3. LITHIUM CARBONATE [Concomitant]
  4. TRILEPTAL [Concomitant]
  5. EFFEXOR [Concomitant]
  6. FOLIC ACID [Concomitant]
  7. LEVOXYL [Concomitant]
  8. LORAZEPAM [Concomitant]
  9. CLONAPIN (CLONAZEPAM) [Concomitant]
  10. ESKALITH [Concomitant]
  11. ASCORBIC ACID [Concomitant]
  12. CENTRUM (CENTRUM) [Concomitant]

REACTIONS (1)
  - DEEP VEIN THROMBOSIS [None]
